FAERS Safety Report 6285772-6 (Version None)
Quarter: 2009Q3

REPORT INFORMATION
  Report Type: 
  Country: None (occurrence: None)
  Receive Date: 20090724
  Receipt Date: 20090710
  Transmission Date: 20100115
  Serious: Yes (Other)
  Sender: FDA-Public Use
  Company Number: 2009S1005117

PATIENT
  Sex: Female

DRUGS (1)
  1. PHOSPHOSODA FLAVOR NOT SPECIFIED [Suspect]
     Indication: COLONOSCOPY
     Dosage: 90 ML;TOTAL; PO
     Route: 048
     Dates: start: 20061017, end: 20061018

REACTIONS (2)
  - NEPHROGENIC ANAEMIA [None]
  - RENAL FAILURE CHRONIC [None]
